FAERS Safety Report 21948543 (Version 1)
Quarter: 2023Q1

REPORT INFORMATION
  Report Type: Spontaneous
  Country: US (occurrence: US)
  Receive Date: 20230203
  Receipt Date: 20230203
  Transmission Date: 20230417
  Serious: No
  Sender: FDA-Public Use
  Company Number: US-LA JOLLA PHARMACEUTICAL COMPANY-0000428

PATIENT

DRUGS (6)
  1. GIAPREZA [Suspect]
     Active Substance: ANGIOTENSIN II
     Indication: Septic shock
     Dosage: 10- 40 NG/KG/MIN
  2. NOREPINEPHRINE [Concomitant]
     Active Substance: NOREPINEPHRINE
     Indication: Septic shock
     Dosage: 0.3 MCG/ KG/MIN
  3. VASOPRESSIN [Concomitant]
     Active Substance: VASOPRESSIN
     Indication: Septic shock
     Dosage: 0.04 UNITS/MIN
  4. EPINEPHRINE [Concomitant]
     Active Substance: EPINEPHRINE
     Indication: Septic shock
     Dosage: 0.3 MCG/KG/MIN
  5. DOBUTAMINE [Concomitant]
     Active Substance: DOBUTAMINE HYDROCHLORIDE
     Indication: Septic shock
     Dosage: 12.5 MCG/ KG/MIN
  6. VITAMIN B12 [Concomitant]
     Active Substance: CYANOCOBALAMIN
     Indication: Product used for unknown indication
     Dosage: 5 GRAM
     Route: 065

REACTIONS (4)
  - Livedo reticularis [Recovered/Resolved]
  - Peripheral coldness [Unknown]
  - Skin discolouration [Recovering/Resolving]
  - Drug ineffective [Unknown]
